FAERS Safety Report 6161241-9 (Version None)
Quarter: 2009Q2

REPORT INFORMATION
  Report Type: 
  Country: None (occurrence: None)
  Receive Date: 20090417
  Receipt Date: 20090410
  Transmission Date: 20091009
  Serious: No
  Sender: FDA-Public Use
  Company Number: 241783

PATIENT
  Age: 49 Year
  Sex: Female

DRUGS (1)
  1. HEPARIN SODIUM [Suspect]
     Indication: DRUG USE FOR UNKNOWN INDICATION
     Dosage: INTRAVENOUS
     Route: 042
     Dates: start: 20080122, end: 20080122

REACTIONS (4)
  - ANXIETY [None]
  - CHEST DISCOMFORT [None]
  - DYSPNOEA [None]
  - URTICARIA [None]
